FAERS Safety Report 12451221 (Version 4)
Quarter: 2016Q3

REPORT INFORMATION
  Report Type: Spontaneous
  Country: US (occurrence: US)
  Receive Date: 20160609
  Receipt Date: 20160715
  Transmission Date: 20161109
  Serious: Yes (Hospitalization, Other)
  Sender: FDA-Public Use
  Company Number: US-ALEXION PHARMACEUTICALS INC-A201604092

PATIENT
  Sex: Female

DRUGS (1)
  1. SOLIRIS [Suspect]
     Active Substance: ECULIZUMAB
     Indication: HAEMOLYTIC URAEMIC SYNDROME
     Dosage: UNK
     Route: 042

REACTIONS (6)
  - Haematemesis [Unknown]
  - Loss of consciousness [Unknown]
  - Gastrointestinal polyp haemorrhage [Unknown]
  - Gastric polyps [Recovering/Resolving]
  - Diarrhoea haemorrhagic [Unknown]
  - Eructation [Unknown]
